FAERS Safety Report 12542106 (Version 5)
Quarter: 2017Q4

REPORT INFORMATION
  Report Type: Spontaneous
  Country: JP (occurrence: JP)
  Receive Date: 20160708
  Receipt Date: 20171214
  Transmission Date: 20180320
  Serious: Yes (Death, Other)
  Sender: FDA-Public Use
  Company Number: PHJP2016JP018090

PATIENT
  Age: 84 Year
  Sex: Female

DRUGS (2)
  1. ALERTINE//PREDNISOLONE [Concomitant]
     Indication: PRODUCT USED FOR UNKNOWN INDICATION
     Dosage: 10 MG, UNK
     Route: 065
  2. REVOLADE TAB [Suspect]
     Active Substance: ELTROMBOPAG
     Indication: IMMUNE THROMBOCYTOPENIC PURPURA
     Dosage: 12.5 MG, QOD
     Route: 048
     Dates: start: 20160425, end: 20160618

REACTIONS (5)
  - Vascular insufficiency [Unknown]
  - Ileus paralytic [Fatal]
  - Oedema peripheral [Unknown]
  - Hypotension [Fatal]
  - Thrombosis [Not Recovered/Not Resolved]

NARRATIVE: CASE EVENT DATE: 20160605
